FAERS Safety Report 9026512 (Version 1)
Quarter: 2012Q4

REPORT INFORMATION
  Report Type: Spontaneous
  Country: US (occurrence: None)
  Receive Date: 20121213
  Receipt Date: 20121213
  Transmission Date: 20130627
  Serious: Yes (Hospitalization)
  Sender: FDA-Public Use
  Company Number: None

PATIENT
  Age: 90 Year
  Sex: Female

DRUGS (1)
  1. RISPERIDONE [Suspect]
     Dosage: 0.25 MG PO QHS
     Route: 048
     Dates: start: 20120127, end: 20120710

REACTIONS (2)
  - Myoclonus [None]
  - Muscle twitching [None]
